FAERS Safety Report 6370601-2 (Version None)
Quarter: 2009Q3

REPORT INFORMATION
  Report Type: 
  Country: None (occurrence: None)
  Receive Date: 20090921
  Receipt Date: 20090921
  Transmission Date: 20100115
  Serious: No
  Sender: FDA-Public Use
  Company Number: None

PATIENT
  Age: 66 Year
  Sex: Male
  Weight: 99.79 kg

DRUGS (1)
  1. ROSUVASTATIN CALCIUM [Suspect]
     Indication: HYPERLIPIDAEMIA
     Dosage: 20 MG EVERY DAY PO
     Route: 048
     Dates: start: 20080903, end: 20090618

REACTIONS (2)
  - ARTHRALGIA [None]
  - MYALGIA [None]
